FAERS Safety Report 9491892 (Version 1)
Quarter: 2013Q3

REPORT INFORMATION
  Report Type: Spontaneous
  Country: AR (occurrence: AR)
  Receive Date: 20130830
  Receipt Date: 20130830
  Transmission Date: 20140515
  Serious: Yes (Hospitalization)
  Sender: FDA-Public Use
  Company Number: AR-PFIZER INC-2013249288

PATIENT
  Age: 68 Year
  Sex: Male

DRUGS (1)
  1. RAPAMUNE [Suspect]
     Dosage: 0.5 MG, 1X/DAY
     Dates: start: 20010515, end: 2006

REACTIONS (2)
  - Bronchitis [Recovered/Resolved]
  - Pericardial effusion [Recovered/Resolved]
